FAERS Safety Report 8417617-X (Version None)
Quarter: 2012Q2

REPORT INFORMATION
  Report Type: 
  Country: None (occurrence: None)
  Receive Date: 20120606
  Receipt Date: 20120530
  Transmission Date: 20120825
  Serious: Yes (Other)
  Sender: FDA-Public Use
  Company Number: TR-ROCHE-1075183

PATIENT
  Age: 38 Year
  Sex: Female

DRUGS (5)
  1. XOLAIR [Suspect]
     Indication: ASTHMA
     Route: 058
  2. MONTELUKAST SODIUM [Concomitant]
  3. BUDESONIDE [Concomitant]
  4. VENTOLIN [Concomitant]
  5. FORMOTEROL FUMARATE [Concomitant]

REACTIONS (2)
  - RHINITIS [None]
  - BRONCHOSPASM [None]
